FAERS Safety Report 10066950 (Version 2)
Quarter: 2014Q2

REPORT INFORMATION
  Report Type: Report from Study
  Country: NL (occurrence: NL)
  Receive Date: 20140409
  Receipt Date: 20140420
  Transmission Date: 20141212
  Serious: Yes (Death)
  Sender: FDA-Public Use
  Company Number: PHHY2013NL156000

PATIENT
  Sex: Female

DRUGS (15)
  1. PRIMPERAN [Concomitant]
     Dosage: UNK UKN, UNK
  2. COMBIVENT [Concomitant]
     Dosage: UNK UKN, UNK
  3. SUCRALFAAT [Concomitant]
     Dosage: UNK UKN, UNK
  4. TOBI [Suspect]
     Indication: PSEUDOMONAS INFECTION
     Dosage: 180 MG, (4.5 ML, 2 DAILY DAYS )
     Route: 055
  5. TOBI [Suspect]
     Indication: BRONCHIECTASIS
  6. TOBI [Suspect]
     Indication: OFF LABEL USE
  7. OMEPRAZOLE [Concomitant]
     Dosage: UNK UKN, UNK
  8. FUROSEMIDE [Concomitant]
     Dosage: UNK UKN, UNK
  9. PREDNISONE [Concomitant]
     Dosage: UNK UKN, UNK
  10. DIAZEPAM [Concomitant]
     Dosage: UNK UKN, UNK
  11. FENTANYL [Concomitant]
     Dosage: UNK UKN, UNK
  12. FLUIMUCIL [Concomitant]
     Dosage: UNK UKN, UNK
  13. TEMAZEPAM [Concomitant]
     Dosage: UNK UKN, UNK
  14. AMITRIPTYLINE [Concomitant]
     Dosage: UNK UKN, UNK
  15. PARACETAMOL [Concomitant]
     Dosage: UNK UKN, UNK

REACTIONS (1)
  - Death [Fatal]
